FAERS Safety Report 4969237-7 (Version None)
Quarter: 2006Q2

REPORT INFORMATION
  Report Type: 
  Country: None (occurrence: None)
  Receive Date: 20060405
  Receipt Date: 20060324
  Transmission Date: 20061013
  Serious: Yes (Other)
  Sender: FDA-Public Use
  Company Number: 2006041639

PATIENT
  Age: 62 Year
  Sex: Male
  Weight: 83.9154 kg

DRUGS (7)
  1. LIPITOR [Suspect]
     Indication: BLOOD CHOLESTEROL INCREASED
     Dosage: 40 MG (40 MG, 1 IN 1 D) 6 YEARS AGO
  2. CELLCEPT [Concomitant]
  3. PROGRAF [Concomitant]
  4. BACTRIM [Concomitant]
  5. SYNTHROID [Concomitant]
  6. NEXIUM [Concomitant]
  7. ALLEGRA [Concomitant]

REACTIONS (9)
  - BLINDNESS [None]
  - BLOOD CHOLESTEROL INCREASED [None]
  - CARDIAC FAILURE CONGESTIVE [None]
  - DIPLOPIA [None]
  - HEART TRANSPLANT [None]
  - MYALGIA [None]
  - MYOCARDIAL INFARCTION [None]
  - RETINAL DETACHMENT [None]
  - VISUAL ACUITY REDUCED [None]
